FAERS Safety Report 8544316-6 (Version None)
Quarter: 2012Q3

REPORT INFORMATION
  Report Type: 
  Country: None (occurrence: None)
  Receive Date: 20120727
  Receipt Date: 20120723
  Transmission Date: 20120928
  Serious: Yes (Hospitalization, Other)
  Sender: FDA-Public Use
  Company Number: US-PFIZER INC-2012153480

PATIENT
  Sex: Male

DRUGS (2)
  1. PREDNISONE [Concomitant]
     Dosage: 40 MG, 1X/DAY
  2. CELEBREX [Suspect]
     Indication: OSTEOARTHRITIS
     Dosage: 200 MG  UNK
     Dates: start: 20120101

REACTIONS (2)
  - GASTROINTESTINAL HAEMORRHAGE [None]
  - PEPTIC ULCER [None]
